FAERS Safety Report 5221619-4 (Version None)
Quarter: 2007Q1

REPORT INFORMATION
  Report Type: 
  Country: None (occurrence: None)
  Receive Date: 20070126
  Receipt Date: 20070126
  Transmission Date: 20070707
  Serious: No
  Sender: FDA-Public Use
  Company Number: None

PATIENT
  Age: 24 Year
  Sex: Female

DRUGS (1)
  1. TUBERSOL [Suspect]
     Dosage: INTRADERMAL R FOREARM
     Route: 023
     Dates: start: 20061115

REACTIONS (1)
  - ERYTHEMA [None]
